FAERS Safety Report 10214592 (Version 1)
Quarter: 2014Q2

REPORT INFORMATION
  Report Type: Spontaneous
  Country: FR (occurrence: FR)
  Receive Date: 20140603
  Receipt Date: 20140603
  Transmission Date: 20141212
  Serious: Yes (Congenital Anomaly, Other)
  Sender: FDA-Public Use
  Company Number: FR-GLAXOSMITHKLINE-B0998413A

PATIENT
  Age: 5 Day
  Sex: Female

DRUGS (2)
  1. LAMICTAL [Suspect]
     Indication: EPILEPSY
     Dosage: 200MG TWICE PER DAY
     Route: 064
  2. SPECIAFOLDINE [Concomitant]
     Route: 064

REACTIONS (2)
  - Congenital nystagmus [Not Recovered/Not Resolved]
  - Foetal exposure during pregnancy [Unknown]
